FAERS Safety Report 22110377 (Version 1)
Quarter: 2023Q1

REPORT INFORMATION
  Report Type: Report from Study
  Country: ID (occurrence: None)
  Receive Date: 20230317
  Receipt Date: 20230317
  Transmission Date: 20230418
  Serious: Yes (Death)
  Sender: FDA-Public Use
  Company Number: 2023A063994

PATIENT
  Age: 19652 Day
  Sex: Female

DRUGS (1)
  1. FASLODEX [Suspect]
     Active Substance: FULVESTRANT
     Indication: Breast cancer metastatic
     Dosage: RECEIVED FASLODEX INJECTION FOR 3 TIMES500.0MG UNKNOWN
     Route: 030
     Dates: start: 20221124

REACTIONS (1)
  - Death [Fatal]

NARRATIVE: CASE EVENT DATE: 20230225
